FAERS Safety Report 8589618-2 (Version None)
Quarter: 2012Q3

REPORT INFORMATION
  Report Type: 
  Country: None (occurrence: None)
  Receive Date: 20120813
  Receipt Date: 20120802
  Transmission Date: 20120928
  Serious: Yes (Death, Hospitalization)
  Sender: FDA-Public Use
  Company Number: JP-ROCHE-1078995

PATIENT
  Sex: Male
  Weight: 60 kg

DRUGS (11)
  1. ZOMETA [Concomitant]
     Indication: METASTASES TO BONE
     Dosage: DOSAGE IS UNCERTAIN.
     Route: 041
     Dates: start: 20100308
  2. SELBEX [Concomitant]
     Indication: PROPHYLAXIS
     Route: 048
     Dates: start: 20100729, end: 20101027
  3. AVASTIN [Suspect]
     Indication: RECTAL CANCER RECURRENT
     Route: 041
     Dates: start: 20100728, end: 20101006
  4. FLUOROURACIL [Concomitant]
     Route: 041
     Dates: start: 20100728, end: 20101001
  5. KYTRIL [Concomitant]
     Indication: PROPHYLAXIS OF NAUSEA AND VOMITING
     Route: 041
     Dates: start: 20100728, end: 20101006
  6. GABAPENTIN [Concomitant]
     Indication: PAIN PROPHYLAXIS
     Route: 048
     Dates: start: 20100729, end: 20101027
  7. VITAMIN B12 [Concomitant]
     Indication: PAIN PROPHYLAXIS
     Route: 048
     Dates: start: 20100729, end: 20101027
  8. DEXAMETHASONE SODIUM PHOSPHATE [Concomitant]
     Indication: PROPHYLAXIS OF NAUSEA AND VOMITING
     Route: 041
     Dates: start: 20100728, end: 20101006
  9. LOXONIN [Concomitant]
     Indication: PAIN PROPHYLAXIS
     Route: 048
     Dates: start: 20100729, end: 20101027
  10. FLUOROURACIL [Concomitant]
     Indication: RECTAL CANCER RECURRENT
     Route: 040
     Dates: start: 20100728, end: 20101006
  11. LEVOLEUCOVORIN CALCIUM [Concomitant]
     Indication: RECTAL CANCER RECURRENT
     Route: 041
     Dates: start: 20100728, end: 20101006

REACTIONS (5)
  - DISEASE PROGRESSION [None]
  - GASTROINTESTINAL PERFORATION [None]
  - ULCER [None]
  - SEPSIS [None]
  - ABSCESS [None]
